FAERS Safety Report 25061785 (Version 2)
Quarter: 2025Q4

REPORT INFORMATION
  Report Type: Report from Study
  Country: US (occurrence: US)
  Receive Date: 20250311
  Receipt Date: 20251219
  Transmission Date: 20260119
  Serious: No
  Sender: ELI LILLY AND COMPANY
  Company Number: US-ELI_LILLY_AND_COMPANY-US202503006162

PATIENT
  Age: 45 Year
  Sex: Male

DRUGS (1)
  1. EBGLYSS [Suspect]
     Active Substance: LEBRIKIZUMAB-LBKZ
     Indication: Type 2 diabetes mellitus
     Dosage: 250 MG, UNKNOWN
     Route: 065
     Dates: start: 20250911

REACTIONS (5)
  - Eczema [Unknown]
  - Malaise [Unknown]
  - Erythema [Unknown]
  - Pruritus [Unknown]
  - Off label use [Unknown]
